FAERS Safety Report 4373438-9 (Version None)
Quarter: 2004Q2

REPORT INFORMATION
  Report Type: 
  Country: None (occurrence: None)
  Receive Date: 20040603
  Receipt Date: 20040520
  Transmission Date: 20050107
  Serious: Yes (Death)
  Sender: FDA-Public Use
  Company Number: 2004214585DK

PATIENT
  Age: 79 Year
  Sex: Female
  Weight: 35 kg

DRUGS (12)
  1. CABERGOLINE [Suspect]
     Indication: PARKINSON'S DISEASE
  2. ACETAMINOPHEN [Concomitant]
  3. BUPRENORPHINE (BUPRENORPHINE ) [Concomitant]
  4. MORPHINE [Concomitant]
  5. VERAPAMIL [Concomitant]
  6. QUININE (QUININE) [Concomitant]
  7. PROPRANOLOL [Concomitant]
  8. BUMETANIDE [Concomitant]
  9. CODEINE [Concomitant]
  10. THEOPHYLLINE [Concomitant]
  11. LANSOPRAZOLE [Concomitant]
  12. METRONIDAZOLE [Concomitant]

REACTIONS (12)
  - ADENOCARCINOMA [None]
  - BILE DUCT CANCER [None]
  - CONFUSIONAL STATE [None]
  - GENERAL PHYSICAL CONDITION ABNORMAL [None]
  - HYDROTHORAX [None]
  - INTENTIONAL MISUSE [None]
  - METASTASES TO GALLBLADDER [None]
  - METASTASES TO LIVER [None]
  - METASTASES TO LYMPH NODES [None]
  - OVERDOSE [None]
  - POISONING [None]
  - PULMONARY OEDEMA [None]
